FAERS Safety Report 10754801 (Version 1)
Quarter: 2015Q1

REPORT INFORMATION
  Report Type: Spontaneous
  Country: NL (occurrence: NL)
  Receive Date: 20150202
  Receipt Date: 20150202
  Transmission Date: 20150721
  Serious: Yes (Hospitalization)
  Sender: FDA-Public Use
  Company Number: NL-TEVA-536265ISR

PATIENT
  Age: 82 Year
  Sex: Male
  Weight: 65 kg

DRUGS (3)
  1. METFORMIN [Suspect]
     Active Substance: METFORMIN HYDROCHLORIDE
     Indication: HYPERGLYCAEMIA
     Dosage: 500 MILLIGRAM DAILY;
     Route: 048
     Dates: start: 20150104, end: 20150107
  2. FUROSEMIDE TABLET 40MG [Concomitant]
     Active Substance: FUROSEMIDE
     Dosage: 80 MILLIGRAM DAILY;
     Route: 048
     Dates: start: 2013, end: 20150107
  3. IRBESARTAN TABLET 150MG [Concomitant]
     Dosage: 2 KEER PER DAG 1 STUK(S), EXTRA INFO:  150 MG
     Route: 048
     Dates: start: 2012, end: 20150107

REACTIONS (1)
  - Azotaemia [Recovering/Resolving]

NARRATIVE: CASE EVENT DATE: 20150106
